FAERS Safety Report 4285582-5 (Version None)
Quarter: 2004Q1

REPORT INFORMATION
  Report Type: 
  Country: None (occurrence: None)
  Receive Date: 20040203
  Receipt Date: 20040119
  Transmission Date: 20041129
  Serious: Yes (Hospitalization)
  Sender: FDA-Public Use
  Company Number: 177383

PATIENT
  Age: 37 Year
  Sex: Male
  Weight: 82.5547 kg

DRUGS (8)
  1. AVONEX [Suspect]
     Indication: MULTIPLE SCLEROSIS
     Dosage: 30 MCG QW IM
     Route: 030
     Dates: start: 19980101
  2. BACLOFEN [Concomitant]
  3. NEURONTIN [Concomitant]
  4. FLOMAX ^CHIESI^ [Concomitant]
  5. TEMAZEPAM [Concomitant]
  6. PROVIGIL [Concomitant]
  7. DICLOFENAC [Concomitant]
  8. PERCOCET [Concomitant]

REACTIONS (4)
  - APNOEA [None]
  - CONVULSION [None]
  - HYPOAESTHESIA [None]
  - MULTIPLE SCLEROSIS RELAPSE [None]
